FAERS Safety Report 6729724-8 (Version None)
Quarter: 2010Q2

REPORT INFORMATION
  Report Type: 
  Country: None (occurrence: None)
  Receive Date: 20100518
  Receipt Date: 20100428
  Transmission Date: 20101027
  Serious: Yes (Other)
  Sender: FDA-Public Use
  Company Number: PHHY2009FR17297

PATIENT
  Age: 65 Year
  Sex: Female

DRUGS (5)
  1. FRACTAL [Suspect]
     Indication: HYPERCHOLESTEROLAEMIA
     Dosage: 80 MG, QD
     Route: 048
     Dates: start: 20041001
  2. FRACTAL [Suspect]
     Dosage: 80 MG, QD
     Route: 048
     Dates: start: 20100401
  3. LOGROTON [Concomitant]
     Indication: HYPERTENSION
     Dosage: 1 DF PER DAY
  4. LEVOTHYROXINE SODIUM [Concomitant]
     Indication: HYPOTHYROIDISM
     Dosage: 75 UG, UNK
  5. ALLOPURINOL [Concomitant]

REACTIONS (6)
  - BLOOD CREATINE PHOSPHOKINASE INCREASED [None]
  - BLOOD CREATININE INCREASED [None]
  - MONOPLEGIA [None]
  - MUSCLE SPASMS [None]
  - PARAESTHESIA [None]
  - SCIATIC NERVE NEUROPATHY [None]
